FAERS Safety Report 21925451 (Version 1)
Quarter: 2023Q1

REPORT INFORMATION
  Report Type: Spontaneous
  Country: US (occurrence: US)
  Receive Date: 20230130
  Receipt Date: 20230130
  Transmission Date: 20230418
  Serious: No
  Sender: FDA-Public Use
  Company Number: US-DSJP-DSU-2023-103049AA

PATIENT
  Sex: Female

DRUGS (2)
  1. TURALIO [Suspect]
     Active Substance: PEXIDARTINIB HYDROCHLORIDE
     Indication: Product used for unknown indication
     Dosage: 400 MG, BID (400 MG IN THE MORNING AND 400 MG AT NIGHT)
     Route: 048
  2. TURALIO [Suspect]
     Active Substance: PEXIDARTINIB HYDROCHLORIDE
     Dosage: 500 MG
     Route: 048

REACTIONS (2)
  - Therapy change [Unknown]
  - No adverse event [Unknown]
